FAERS Safety Report 7418428-4 (Version None)
Quarter: 2011Q2

REPORT INFORMATION
  Report Type: 
  Country: None (occurrence: None)
  Receive Date: 20110415
  Receipt Date: 20110407
  Transmission Date: 20111010
  Serious: Yes (Other)
  Sender: FDA-Public Use
  Company Number: PHHY2011GB28224

PATIENT
  Sex: Male

DRUGS (3)
  1. OMEPRAZOLE [Suspect]
  2. SIMVASTATIN [Suspect]
     Indication: BLOOD CHOLESTEROL
     Dosage: 20 MG, UNK
  3. IBUPROFEN [Concomitant]
     Dosage: 600 MG, QD

REACTIONS (2)
  - RENAL DISORDER [None]
  - BURNING SENSATION [None]
